FAERS Safety Report 7462334-6 (Version None)
Quarter: 2011Q2

REPORT INFORMATION
  Report Type: 
  Country: None (occurrence: None)
  Receive Date: 20110506
  Receipt Date: 20110407
  Transmission Date: 20111010
  Serious: Yes (Hospitalization, Other)
  Sender: FDA-Public Use
  Company Number: US-BAYER-2011-037582

PATIENT
  Age: 20 Year
  Sex: Female
  Weight: 61.224 kg

DRUGS (8)
  1. DROSPIRENONE AND ETHINYL ESTRADIOL [Suspect]
     Indication: CONTRACEPTION
     Dosage: UNK UNK, QD
     Dates: start: 20070101, end: 20090101
  2. XANAX [Concomitant]
     Dosage: 1 MG, PRN
  3. KLONOPIN [Concomitant]
     Dosage: 1 MG, UNK
  4. YAZ [Suspect]
     Indication: CONTRACEPTION
     Dosage: UNK UNK, QD
     Dates: start: 20080101, end: 20090101
  5. ADDERALL 10 [Concomitant]
     Dosage: 20 MG, BID
  6. YASMIN [Suspect]
     Indication: CONTRACEPTION
     Dosage: UNK UNK, QD
     Dates: start: 20070101, end: 20090101
  7. NUVARING [Concomitant]
  8. DROSPIRENONE AND ETHINYL ESTRADIOL [Suspect]
     Dosage: UNK UNK, QD
     Dates: start: 20080101, end: 20090101

REACTIONS (5)
  - CHEST PAIN [None]
  - GALLBLADDER DISORDER [None]
  - CHOLECYSTITIS CHRONIC [None]
  - PAIN [None]
  - BILIARY DYSKINESIA [None]
